FAERS Safety Report 25900514 (Version 1)
Quarter: 2025Q4

REPORT INFORMATION
  Report Type: Spontaneous
  Country: US (occurrence: None)
  Receive Date: 20251008
  Receipt Date: 20251008
  Transmission Date: 20260117
  Serious: No
  Sender: FDA-CTU
  Company Number: None

PATIENT
  Age: 53 Year
  Sex: Female

DRUGS (1)
  1. NUCALA [Suspect]
     Active Substance: MEPOLIZUMAB
     Indication: Eosinophilic granulomatosis with polyangiitis
     Dosage: 100MG EVERY 4 WEEKS ?
     Dates: start: 20250620

REACTIONS (2)
  - Urticaria [None]
  - Injection related reaction [None]

NARRATIVE: CASE EVENT DATE: 20250917
